FAERS Safety Report 25078928 (Version 2)
Quarter: 2025Q1

REPORT INFORMATION
  Report Type: Spontaneous
  Country: BE (occurrence: BE)
  Receive Date: 20250314
  Receipt Date: 20250328
  Transmission Date: 20250409
  Serious: Yes (Hospitalization, Disabling, Other)
  Sender: NOVARTIS
  Company Number: BE-002147023-NVSC2025BE041369

PATIENT
  Sex: Female

DRUGS (4)
  1. BEOVU [Suspect]
     Active Substance: BROLUCIZUMAB-DBLL
     Indication: Product used for unknown indication
     Route: 065
  2. BEOVU [Suspect]
     Active Substance: BROLUCIZUMAB-DBLL
     Route: 031
     Dates: start: 20240812
  3. BEOVU [Suspect]
     Active Substance: BROLUCIZUMAB-DBLL
     Route: 031
     Dates: start: 20241118
  4. BEOVU [Suspect]
     Active Substance: BROLUCIZUMAB-DBLL
     Route: 031
     Dates: start: 20250224

REACTIONS (5)
  - Panophthalmitis [Not Recovered/Not Resolved]
  - Visual impairment [Not Recovered/Not Resolved]
  - Eye pain [Not Recovered/Not Resolved]
  - Corneal oedema [Not Recovered/Not Resolved]
  - Eye haemorrhage [Not Recovered/Not Resolved]

NARRATIVE: CASE EVENT DATE: 20250226
